FAERS Safety Report 6708401-3 (Version None)
Quarter: 2010Q2

REPORT INFORMATION
  Report Type: 
  Country: None (occurrence: None)
  Receive Date: 20100503
  Receipt Date: 20090309
  Transmission Date: 20101027
  Serious: No
  Sender: FDA-Public Use
  Company Number: US-ASTRAZENECA-2009UW06216

PATIENT
  Sex: Female

DRUGS (2)
  1. NEXIUM [Suspect]
     Dosage: UNKNOWN
     Route: 048
     Dates: end: 20090216
  2. SEROQUEL [Suspect]
     Dosage: UNKNOWN
     Route: 048
     Dates: end: 20090223

REACTIONS (2)
  - DRUG DOSE OMISSION [None]
  - ILL-DEFINED DISORDER [None]
